FAERS Safety Report 7016049-9 (Version None)
Quarter: 2010Q3

REPORT INFORMATION
  Report Type: 
  Country: None (occurrence: None)
  Receive Date: 20100927
  Receipt Date: 20100923
  Transmission Date: 20110219
  Serious: Yes (Other)
  Sender: FDA-Public Use
  Company Number: GXKR2010DE10772

PATIENT
  Age: 67 Year
  Sex: Female

DRUGS (1)
  1. CIPRO 1A PHARMA (NGX) [Suspect]
     Dosage: 250 MG, BID
     Route: 048
     Dates: start: 20100910, end: 20100915

REACTIONS (1)
  - BLOOD CREATINE PHOSPHOKINASE INCREASED [None]
